FAERS Safety Report 5306772-6 (Version None)
Quarter: 2007Q1

REPORT INFORMATION
  Report Type: 
  Country: None (occurrence: None)
  Receive Date: 20070201
  Receipt Date: 20061202
  Transmission Date: 20070707
  Serious: No
  Sender: FDA-Public Use
  Company Number: 2006PV026266

PATIENT
  Age: 49 Year
  Sex: Male
  Weight: 77.7919 kg

DRUGS (4)
  1. BYETTA [Suspect]
     Indication: DIABETES MELLITUS NON-INSULIN-DEPENDENT
     Dosage: 5 MCG; BID; SC
     Route: 058
     Dates: start: 20061102, end: 20061201
  2. METFORMIN HCL [Concomitant]
  3. AVANDIA [Concomitant]
  4. GLYCET [Concomitant]

REACTIONS (15)
  - ANHEDONIA [None]
  - ANOREXIA [None]
  - ASTHENIA [None]
  - BLOOD GLUCOSE DECREASED [None]
  - BLOOD GLUCOSE INCREASED [None]
  - CONSTIPATION [None]
  - DEPRESSED MOOD [None]
  - DRUG INEFFECTIVE [None]
  - FATIGUE [None]
  - FOOD CRAVING [None]
  - HYPERSOMNIA [None]
  - LIBIDO DECREASED [None]
  - NAUSEA [None]
  - THIRST DECREASED [None]
  - WEIGHT DECREASED [None]
